FAERS Safety Report 12245381 (Version 2)
Quarter: 2016Q2

REPORT INFORMATION
  Report Type: Spontaneous
  Country: FR (occurrence: FR)
  Receive Date: 20160407
  Receipt Date: 20160411
  Transmission Date: 20160815
  Serious: Yes (Hospitalization, Other)
  Sender: FDA-Public Use
  Company Number: FR-PFIZER INC-2016187981

PATIENT
  Age: 17 Year
  Sex: Female

DRUGS (4)
  1. ADRIBLASTINE [Suspect]
     Active Substance: DOXORUBICIN
     Indication: HODGKIN^S DISEASE
     Dosage: 25 MG/M2, CYCLIC
     Route: 042
     Dates: start: 20141122, end: 20141122
  2. BLEOMYCIN [Suspect]
     Active Substance: BLEOMYCIN SULFATE
     Indication: HODGKIN^S DISEASE
     Dosage: 10 MG/M2, CYCLIC
     Route: 042
     Dates: start: 20141119, end: 20141119
  3. DETICENE [Suspect]
     Active Substance: DACARBAZINE
     Indication: HODGKIN^S DISEASE
     Dosage: 375 MG/M2, CYCLIC
     Route: 042
     Dates: start: 20141122, end: 20141122
  4. VINBLASTINE [Suspect]
     Active Substance: VINBLASTINE
     Indication: HODGKIN^S DISEASE
     Dosage: 6 MG/M2, CYCLIC
     Route: 042
     Dates: start: 20141119, end: 20141119

REACTIONS (4)
  - Sepsis [Recovered/Resolved]
  - Acute kidney injury [Recovering/Resolving]
  - Device related infection [Recovered/Resolved]
  - Staphylococcal infection [Recovered/Resolved]

NARRATIVE: CASE EVENT DATE: 201411
